FAERS Safety Report 13893900 (Version 1)
Quarter: 2017Q3

REPORT INFORMATION
  Report Type: Spontaneous
  Country: DE (occurrence: DE)
  Receive Date: 20170822
  Receipt Date: 20170822
  Transmission Date: 20171127
  Serious: Yes (Other)
  Sender: FDA-Public Use
  Company Number: DE-BAUSCH-BL-2017-024539

PATIENT
  Sex: Female

DRUGS (11)
  1. FLUOROURACIL. [Suspect]
     Active Substance: FLUOROURACIL
     Indication: INTESTINAL ADENOCARCINOMA
     Route: 065
  2. IRINOTECAN [Suspect]
     Active Substance: IRINOTECAN
     Route: 065
  3. METHOTREXATE. [Suspect]
     Active Substance: METHOTREXATE
     Indication: LEPTOMENINGEAL MYELOMATOSIS
     Dosage: WEEKLY
     Route: 037
  4. FLUOROURACIL. [Suspect]
     Active Substance: FLUOROURACIL
     Route: 065
  5. CALCIUM FOLINATE [Suspect]
     Active Substance: LEUCOVORIN CALCIUM
     Indication: INTESTINAL ADENOCARCINOMA
     Route: 065
  6. METHOTREXATE. [Suspect]
     Active Substance: METHOTREXATE
     Indication: COLON CANCER METASTATIC
     Dosage: EVERY OTHER WEEK
     Route: 037
  7. BEVACIZUMAB. [Suspect]
     Active Substance: BEVACIZUMAB
     Indication: INTESTINAL ADENOCARCINOMA
     Route: 065
  8. OXALIPLATIN. [Suspect]
     Active Substance: OXALIPLATIN
     Indication: INTESTINAL ADENOCARCINOMA
     Route: 065
  9. OXALIPLATIN. [Suspect]
     Active Substance: OXALIPLATIN
     Route: 065
  10. CALCIUM FOLINATE [Suspect]
     Active Substance: LEUCOVORIN CALCIUM
     Route: 065
  11. IRINOTECAN [Suspect]
     Active Substance: IRINOTECAN
     Indication: INTESTINAL ADENOCARCINOMA
     Route: 065

REACTIONS (3)
  - Off label use [Unknown]
  - Pneumonia [Unknown]
  - Neutropenia [Unknown]
